FAERS Safety Report 7477589-1 (Version None)
Quarter: 2011Q2

REPORT INFORMATION
  Report Type: 
  Country: None (occurrence: None)
  Receive Date: 20110513
  Receipt Date: 20110503
  Transmission Date: 20111010
  Serious: Yes (Death, Hospitalization)
  Sender: FDA-Public Use
  Company Number: DE-JNJFOC-20110500819

PATIENT
  Age: 88 Year
  Sex: Female

DRUGS (17)
  1. METOPROLOL TARTRATE [Interacting]
     Indication: PRODUCT USED FOR UNKNOWN INDICATION
     Route: 048
  2. DOMINAL [Suspect]
     Route: 048
  3. ASPIRIN [Concomitant]
     Route: 048
  4. LANITOP [Concomitant]
     Route: 048
  5. RISPERDAL [Suspect]
     Route: 048
  6. MELNEURIN [Interacting]
     Route: 048
  7. MELNEURIN [Interacting]
     Route: 048
  8. DOMINAL [Suspect]
     Route: 048
  9. NOVALGIN [Concomitant]
     Route: 048
  10. DOMINAL [Suspect]
     Indication: PRODUCT USED FOR UNKNOWN INDICATION
     Route: 048
  11. FURORESE [Concomitant]
     Route: 048
  12. PLAVIX [Concomitant]
     Route: 048
  13. RISPERDAL [Suspect]
     Indication: PRODUCT USED FOR UNKNOWN INDICATION
     Route: 048
  14. MELNEURIN [Interacting]
     Indication: PRODUCT USED FOR UNKNOWN INDICATION
     Route: 048
  15. DELIX [Concomitant]
     Route: 048
  16. RISPERDAL [Suspect]
     Route: 048
  17. LACTULOSE [Concomitant]
     Route: 048

REACTIONS (6)
  - DYSPNOEA [None]
  - RESTLESSNESS [None]
  - RALES [None]
  - DEATH [None]
  - BACK PAIN [None]
  - DRUG INTERACTION [None]
